FAERS Safety Report 21476878 (Version 1)
Quarter: 2022Q4

REPORT INFORMATION
  Report Type: Spontaneous
  Country: US (occurrence: None)
  Receive Date: 20221018
  Receipt Date: 20221018
  Transmission Date: 20230113
  Serious: No
  Sender: FDA-Public Use
  Company Number: None

PATIENT
  Age: 76 Year
  Sex: Male
  Weight: 88 kg

DRUGS (1)
  1. METFORMIN HYDROCHLORIDE [Suspect]
     Active Substance: METFORMIN HYDROCHLORIDE
     Indication: Diabetes mellitus
     Dosage: FREQUENCY : TWICE A DAY;?
     Route: 048
     Dates: start: 20200616, end: 20220706

REACTIONS (5)
  - COVID-19 [None]
  - Acute kidney injury [None]
  - Blood lactic acid increased [None]
  - Coronary arterial stent insertion [None]
  - Therapy cessation [None]

NARRATIVE: CASE EVENT DATE: 20220706
